FAERS Safety Report 7635800-8 (Version None)
Quarter: 2011Q3

REPORT INFORMATION
  Report Type: 
  Country: None (occurrence: None)
  Receive Date: 20110726
  Receipt Date: 20110719
  Transmission Date: 20111222
  Serious: No
  Sender: FDA-Public Use
  Company Number: US-BAYER-2011-063262

PATIENT
  Sex: Female

DRUGS (1)
  1. CLIMARA [Suspect]
     Dosage: UNK
     Route: 062
     Dates: start: 20110701

REACTIONS (2)
  - ABDOMINAL PAIN UPPER [None]
  - BACK PAIN [None]
